FAERS Safety Report 4784198-1 (Version None)
Quarter: 2005Q3

REPORT INFORMATION
  Report Type: 
  Country: None (occurrence: None)
  Receive Date: 20050928
  Receipt Date: 20050912
  Transmission Date: 20060218
  Serious: Yes (Hospitalization)
  Sender: FDA-Public Use
  Company Number: USA0508104343

PATIENT
  Age: 54 Year
  Sex: Male

DRUGS (8)
  1. ZYPREXA [Suspect]
     Indication: SCHIZOPHRENIA
     Dosage: 10 MG AT BEDTIME
     Dates: start: 19971114, end: 20050616
  2. FLUOXETINE [Concomitant]
  3. VOLTAREN [Concomitant]
  4. TRICOR [Concomitant]
  5. ZOCOR [Concomitant]
  6. TRAZODONE [Concomitant]
  7. RELAFEN [Concomitant]
  8. HYDROXYZINE [Concomitant]

REACTIONS (5)
  - ASTHENIA [None]
  - DIABETES MELLITUS NON-INSULIN-DEPENDENT [None]
  - HEADACHE [None]
  - HYPERGLYCAEMIA [None]
  - MIGRAINE WITHOUT AURA [None]
